FAERS Safety Report 4463767-2 (Version None)
Quarter: 2004Q3

REPORT INFORMATION
  Report Type: 
  Country: None (occurrence: None)
  Receive Date: 20040929
  Receipt Date: 20040915
  Transmission Date: 20050211
  Serious: Yes (Life-Threatening, Hospitalization, Other)
  Sender: FDA-Public Use
  Company Number: 2001003893-FJ

PATIENT
  Age: 53 Year
  Sex: Male

DRUGS (8)
  1. TACROLIMUS INJECTION(TACROLIMUS INJECTION) [Suspect]
     Indication: RENAL TRANSPLANT
     Dosage: 2.50 MG , INTRAVENOUS : ORAL : 3.00 MG INTRAVENOUS : ORAL : 3.00 MG, INTRAVENOUS
     Route: 042
     Dates: start: 19971104, end: 19980111
  2. TACROLIMUS INJECTION(TACROLIMUS INJECTION) [Suspect]
     Indication: RENAL TRANSPLANT
     Dosage: 2.50 MG , INTRAVENOUS : ORAL : 3.00 MG INTRAVENOUS : ORAL : 3.00 MG, INTRAVENOUS
     Route: 042
     Dates: start: 19971104, end: 19980111
  3. TACROLIMUS INJECTION(TACROLIMUS INJECTION) [Suspect]
     Indication: RENAL TRANSPLANT
     Dosage: 2.50 MG , INTRAVENOUS : ORAL : 3.00 MG INTRAVENOUS : ORAL : 3.00 MG, INTRAVENOUS
     Route: 042
     Dates: start: 19980112, end: 19980126
  4. TACROLIMUS INJECTION(TACROLIMUS INJECTION) [Suspect]
     Indication: RENAL TRANSPLANT
     Dosage: 2.50 MG , INTRAVENOUS : ORAL : 3.00 MG INTRAVENOUS : ORAL : 3.00 MG, INTRAVENOUS
     Route: 042
     Dates: start: 19980127
  5. TACROLIMUS INJECTION(TACROLIMUS INJECTION) [Suspect]
     Indication: RENAL TRANSPLANT
     Dosage: 2.50 MG , INTRAVENOUS : ORAL : 3.00 MG INTRAVENOUS : ORAL : 3.00 MG, INTRAVENOUS
     Route: 042
     Dates: start: 19980127
  6. METHYLPREDNISOLONE [Suspect]
     Dosage: ORAL
     Route: 048
     Dates: start: 19971007
  7. MYCOPHENOLIC ACID [Suspect]
     Dosage: 2000 MG, ORAL
     Route: 048
     Dates: start: 19971007, end: 19971028
  8. CYCLOSPORINE [Concomitant]

REACTIONS (3)
  - GASTROINTESTINAL HAEMORRHAGE [None]
  - HYPERTENSION [None]
  - TUBERCULOSIS [None]
